FAERS Safety Report 20676936 (Version 1)
Quarter: 2022Q2

REPORT INFORMATION
  Report Type: Spontaneous
  Country: ES (occurrence: ES)
  Receive Date: 20220406
  Receipt Date: 20220406
  Transmission Date: 20220720
  Serious: Yes (Hospitalization)
  Sender: FDA-Public Use
  Company Number: None

PATIENT
  Age: 85 Year
  Sex: Female

DRUGS (7)
  1. FENTANYL [Suspect]
     Active Substance: FENTANYL
     Indication: Osteoarthritis
     Dosage: 1.0 PARCHE C/48 HORAS
     Route: 050
     Dates: start: 20181221, end: 20201106
  2. HYDROCHLOROTHIAZIDE\OLMESARTAN MEDOXOMIL [Concomitant]
     Active Substance: HYDROCHLOROTHIAZIDE\OLMESARTAN MEDOXOMIL
     Indication: Hypertension
     Route: 048
     Dates: start: 20110709
  3. ASPIRIN [Concomitant]
     Active Substance: ASPIRIN
     Indication: Vertigo
     Route: 048
     Dates: start: 20080818
  4. METFORMIN HYDROCHLORIDE [Concomitant]
     Active Substance: METFORMIN HYDROCHLORIDE
     Indication: Diabetes mellitus
     Route: 048
     Dates: start: 20081125
  5. CARVEDILOL CINFA [Concomitant]
     Indication: Hypertension
     Route: 048
     Dates: start: 20101102
  6. OMEPRAZOL PENSA [OMEPRAZOLE] [Concomitant]
     Indication: Gastrooesophageal reflux disease
     Route: 048
     Dates: start: 20081111
  7. ALPRAZOLAM [Concomitant]
     Active Substance: ALPRAZOLAM
     Route: 048
     Dates: start: 20080820

REACTIONS (2)
  - Confusional state [Recovered/Resolved]
  - Accidental overdose [Recovered/Resolved]

NARRATIVE: CASE EVENT DATE: 20201103
